FAERS Safety Report 4397650-8 (Version None)
Quarter: 2004Q3

REPORT INFORMATION
  Report Type: 
  Country: None (occurrence: None)
  Receive Date: 20040713
  Receipt Date: 20040401
  Transmission Date: 20050211
  Serious: Yes (Hospitalization)
  Sender: FDA-Public Use
  Company Number: SGB1-2004-00242

PATIENT
  Age: 75 Year
  Sex: Female
  Weight: 55 kg

DRUGS (7)
  1. ANAGRELIDE HCL [Suspect]
     Indication: ESSENTIAL THROMBOCYTHAEMIA
     Dosage: 3 MG DAILY, ORAL
     Route: 048
     Dates: start: 20030926
  2. NITROGLYCERIN [Concomitant]
  3. DILTIAZEM [Concomitant]
  4. ACEBUTOLOL HCL [Concomitant]
  5. CORVASAL (MOLSIDOMINE) [Concomitant]
  6. RISORDAN (ISOSORBIDE DINITRATE) [Concomitant]
  7. LORAZEPAM [Concomitant]

REACTIONS (22)
  - ABDOMINAL PAIN UPPER [None]
  - ALANINE AMINOTRANSFERASE INCREASED [None]
  - ANAEMIA [None]
  - ASPARTATE AMINOTRANSFERASE INCREASED [None]
  - BLOOD ALKALINE PHOSPHATASE INCREASED [None]
  - C-REACTIVE PROTEIN INCREASED [None]
  - CHOLESTASIS [None]
  - CONSTIPATION [None]
  - CYTOLYTIC HEPATITIS [None]
  - DYSPNOEA [None]
  - HAEMATEMESIS [None]
  - HIATUS HERNIA [None]
  - HYPERTENSION [None]
  - INFECTION [None]
  - PALLOR [None]
  - PALPITATIONS [None]
  - REFUSAL OF TREATMENT BY PATIENT [None]
  - TINNITUS [None]
  - ULTRASOUND ABDOMEN ABNORMAL [None]
  - VERTIGO [None]
  - VOMITING [None]
  - WEIGHT INCREASED [None]
